FAERS Safety Report 5028834-3 (Version None)
Quarter: 2006Q2

REPORT INFORMATION
  Report Type: 
  Country: None (occurrence: None)
  Receive Date: 20060501
  Receipt Date: 20060320
  Transmission Date: 20061013
  Serious: No
  Sender: FDA-Public Use
  Company Number: 200612825US

PATIENT
  Sex: Female

DRUGS (4)
  1. KETEK [Suspect]
     Indication: SINUSITIS
     Dosage: 400 MG QD PO
     Route: 048
     Dates: start: 20060316, end: 20060320
  2. SYNTHROID [Concomitant]
  3. ETHINYLESTRADIOL, NORGESTIMATE (ORTHO TRI-CYCLEN) [Concomitant]
  4. MULTI-VITAMIN [Concomitant]

REACTIONS (1)
  - VISION BLURRED [None]
